FAERS Safety Report 5608103-0 (Version None)
Quarter: 2008Q1

REPORT INFORMATION
  Report Type: 
  Country: None (occurrence: None)
  Receive Date: 20080125
  Receipt Date: 20080115
  Transmission Date: 20080703
  Serious: Yes (Other)
  Sender: FDA-Public Use
  Company Number: 2008AP000190

PATIENT
  Age: 44 Year
  Sex: Female

DRUGS (10)
  1. SERTRALINE HYDROCHLORIDE [Suspect]
     Dosage: 150 MG; PO, 150 MG; PO
     Route: 048
     Dates: start: 20071119
  2. SERTRALINE HYDROCHLORIDE [Suspect]
     Dosage: 150 MG; PO, 150 MG; PO
     Route: 048
     Dates: start: 20071119
  3. VENLAFAXINE HCL [Suspect]
     Dosage: 75 MG; PO, 75 MG; PO
     Route: 048
     Dates: start: 20071108, end: 20071116
  4. VENLAFAXINE HCL [Suspect]
     Dosage: 75 MG; PO, 75 MG; PO
     Route: 048
     Dates: start: 20071108, end: 20071116
  5. DIAZEPAM [Concomitant]
  6. LORAZEPAM [Concomitant]
  7. NITRAZEPAM [Concomitant]
  8. ZOPICLONE (ZOPICLONE) [Concomitant]
  9. FLUOXETINE HCL [Concomitant]
  10. MIRTAZAPINE [Concomitant]

REACTIONS (5)
  - ATAXIA [None]
  - COGNITIVE DISORDER [None]
  - COORDINATION ABNORMAL [None]
  - GAIT DISTURBANCE [None]
  - TREMOR [None]
